FAERS Safety Report 12059378 (Version 1)
Quarter: 2016Q1

REPORT INFORMATION
  Report Type: Spontaneous
  Country: MA (occurrence: MA)
  Receive Date: 20160210
  Receipt Date: 20160210
  Transmission Date: 20160526
  Serious: Yes (Hospitalization, Other)
  Sender: FDA-Public Use
  Company Number: MA-WATSON-2016-02563

PATIENT
  Age: 26 Year
  Sex: Female

DRUGS (1)
  1. CHLORPROMAZINE HYDROCHLORIDE (WATSON LABORATORIES) [Suspect]
     Active Substance: CHLORPROMAZINE HYDROCHLORIDE
     Indication: SCHIZOPHRENIA
     Dosage: UNK
     Route: 065

REACTIONS (5)
  - Renal failure [Unknown]
  - Haemorrhage intracranial [Unknown]
  - Neuroleptic malignant syndrome [Recovered/Resolved]
  - Rhabdomyolysis [Unknown]
  - Hepatocellular injury [Unknown]
